FAERS Safety Report 5282168-0 (Version None)
Quarter: 2007Q1

REPORT INFORMATION
  Report Type: 
  Country: None (occurrence: None)
  Receive Date: 20070330
  Receipt Date: 20070319
  Transmission Date: 20070707
  Serious: Yes (Other)
  Sender: FDA-Public Use
  Company Number: FR-PFIZER INC-2007011208

PATIENT
  Sex: Female

DRUGS (5)
  1. ZARONTIN SYRUP [Suspect]
     Dosage: DAILY DOSE:750MG
     Route: 048
  2. DEPAKENE [Concomitant]
     Route: 048
  3. DOMPERIDONE [Concomitant]
     Route: 048
     Dates: start: 20070129
  4. NIFUROXAZIDE [Concomitant]
     Route: 048
     Dates: start: 20070129
  5. DOLIPRANE [Concomitant]
     Route: 048
     Dates: start: 20070129

REACTIONS (6)
  - ABDOMINAL PAIN UPPER [None]
  - ACNE [None]
  - DRY SKIN [None]
  - PETIT MAL EPILEPSY [None]
  - PRURITUS [None]
  - VOMITING [None]
